FAERS Safety Report 14906833 (Version 1)
Quarter: 2018Q2

REPORT INFORMATION
  Report Type: Spontaneous
  Country: GB (occurrence: GB)
  Receive Date: 20180517
  Receipt Date: 20180517
  Transmission Date: 20180711
  Serious: Yes (Hospitalization)
  Sender: FDA-Public Use
  Company Number: GB-TEVA-2018-GB-893428

PATIENT
  Age: 84 Year
  Sex: Male

DRUGS (13)
  1. DILTIAZEM HYDROCHLORIDE. [Concomitant]
     Active Substance: DILTIAZEM HYDROCHLORIDE
     Route: 065
  2. METFORMIN HYDROCHLORIDE. [Concomitant]
     Active Substance: METFORMIN HYDROCHLORIDE
     Route: 065
  3. BENDROFLUMETHIAZIDE [Concomitant]
     Active Substance: BENDROFLUMETHIAZIDE
     Route: 065
  4. ACETYLSALICYLIC ACID [Suspect]
     Active Substance: ASPIRIN
     Indication: CORONARY ARTERIAL STENT INSERTION
     Dosage: 75 MILLIGRAM DAILY; 6 WEEKS
     Route: 048
  5. XARELTO [Suspect]
     Active Substance: RIVAROXABAN
     Indication: ATRIAL FIBRILLATION
     Dosage: 15 MILLIGRAM DAILY;
     Route: 048
     Dates: start: 201709
  6. HYDROCORTISONE. [Concomitant]
     Active Substance: HYDROCORTISONE
     Route: 065
  7. ATORVASTATIN [Concomitant]
     Active Substance: ATORVASTATIN
     Route: 065
  8. PERINDOPRIL TERT-BUTYLAMINE [Concomitant]
     Active Substance: PERINDOPRIL ERBUMINE
     Route: 065
  9. SOMATROPIN. [Concomitant]
     Active Substance: SOMATROPIN
     Route: 065
  10. CLOPIDOGREL [Suspect]
     Active Substance: CLOPIDOGREL BISULFATE
     Indication: CORONARY ARTERIAL STENT INSERTION
     Dosage: 1 YEAR
     Route: 048
     Dates: start: 201709
  11. GLICLAZIDE [Concomitant]
     Active Substance: GLICLAZIDE
     Route: 065
  12. DOXAZOSIN [Concomitant]
     Active Substance: DOXAZOSIN\DOXAZOSIN MESYLATE
     Route: 065
  13. INSULIN GLARGINE [Concomitant]
     Active Substance: INSULIN GLARGINE
     Route: 065

REACTIONS (4)
  - Faeces discoloured [Unknown]
  - Abdominal discomfort [Unknown]
  - Melaena [Unknown]
  - Gastric haemorrhage [Not Recovered/Not Resolved]

NARRATIVE: CASE EVENT DATE: 20171113
